FAERS Safety Report 23260551 (Version 2)
Quarter: 2023Q4

REPORT INFORMATION
  Report Type: Spontaneous
  Country: US (occurrence: US)
  Receive Date: 20231205
  Receipt Date: 20231210
  Transmission Date: 20240109
  Serious: Yes (Hospitalization, Other)
  Sender: FDA-Public Use
  Company Number: US-ABBVIE-5519309

PATIENT
  Sex: Female
  Weight: 56 kg

DRUGS (11)
  1. KADIAN [Suspect]
     Active Substance: MORPHINE SULFATE
     Indication: Product used for unknown indication
     Dosage: 30 MILLIGRAM
     Route: 065
  2. MEMANTINE [Concomitant]
     Active Substance: MEMANTINE
     Indication: Asthma
  3. SINGULAIR [Concomitant]
     Active Substance: MONTELUKAST SODIUM
     Indication: Asthma
  4. XOLAIR [Concomitant]
     Active Substance: OMALIZUMAB
     Indication: Asthma
  5. PRAVASTATIN [Concomitant]
     Active Substance: PRAVASTATIN
     Indication: Blood cholesterol
  6. FLUOXETINE [Concomitant]
     Active Substance: FLUOXETINE HYDROCHLORIDE
     Indication: Depression
  7. XANAX [Concomitant]
     Active Substance: ALPRAZOLAM
     Indication: Anxiety
  8. Simacort [Concomitant]
     Indication: Asthma
  9. PANTOPRAZOLE [Concomitant]
     Active Substance: PANTOPRAZOLE
     Indication: Gastrooesophageal reflux disease
  10. MIRTAZAPINE [Concomitant]
     Active Substance: MIRTAZAPINE
     Indication: Depression
  11. COZAAR [Concomitant]
     Active Substance: LOSARTAN POTASSIUM
     Indication: Hypertension

REACTIONS (7)
  - Mental disorder [Unknown]
  - Fall [Unknown]
  - Hip fracture [Unknown]
  - Femur fracture [Unknown]
  - Dysstasia [Unknown]
  - Postoperative delirium [Unknown]
  - Oxygen saturation decreased [Unknown]

NARRATIVE: CASE EVENT DATE: 20200101
